FAERS Safety Report 11846538 (Version 2)
Quarter: 2016Q4

REPORT INFORMATION
  Report Type: Spontaneous
  Country: US (occurrence: US)
  Receive Date: 20151217
  Receipt Date: 20161115
  Transmission Date: 20170206
  Serious: No
  Sender: FDA-Public Use
  Company Number: US-ROCHE-1307613

PATIENT
  Age: 31 Year
  Sex: Female

DRUGS (1)
  1. TAMIFLU [Suspect]
     Active Substance: OSELTAMIVIR PHOSPHATE
     Indication: PROPHYLAXIS
     Route: 065

REACTIONS (1)
  - Pregnancy [Unknown]

NARRATIVE: CASE EVENT DATE: 20131120
